FAERS Safety Report 19022124 (Version 2)
Quarter: 2021Q3

REPORT INFORMATION
  Report Type: Spontaneous
  Country: US (occurrence: US)
  Receive Date: 20210317
  Receipt Date: 20210914
  Transmission Date: 20211014
  Serious: No
  Sender: FDA-Public Use
  Company Number: US-ABBVIE-20K-163-3676692-00

PATIENT
  Sex: Female

DRUGS (1)
  1. RINVOQ [Suspect]
     Active Substance: UPADACITINIB
     Indication: RHEUMATOID ARTHRITIS
     Route: 048
     Dates: start: 2019

REACTIONS (6)
  - Device difficult to use [Unknown]
  - Musculoskeletal disorder [Unknown]
  - Impaired healing [Unknown]
  - Product packaging issue [Unknown]
  - Skin laceration [Unknown]
  - Condition aggravated [Unknown]
